FAERS Safety Report 24128044 (Version 2)
Quarter: 2024Q3

REPORT INFORMATION
  Report Type: Spontaneous
  Country: US (occurrence: US)
  Receive Date: 20240723
  Receipt Date: 20240826
  Transmission Date: 20241017
  Serious: No
  Sender: ALKERMES
  Company Number: US-ALKERMES INC.-ALK-2024-001884

PATIENT
  Age: 42 Year
  Sex: Male

DRUGS (2)
  1. ARISTADA [Suspect]
     Active Substance: ARIPIPRAZOLE LAUROXIL
     Indication: Bipolar disorder
     Dosage: 441 MILLIGRAM, QMO
     Route: 030
     Dates: start: 20230102
  2. WELLBUTRIN XL [Concomitant]
     Active Substance: BUPROPION HYDROCHLORIDE
     Indication: Bipolar disorder
     Dosage: 300 MILLIGRAM, QD
     Route: 048
     Dates: start: 20231108

REACTIONS (5)
  - Syringe issue [Recovered/Resolved]
  - Wrong technique in device usage process [Recovered/Resolved]
  - Off label use [Not Recovered/Not Resolved]
  - Product administered by wrong person [Recovered/Resolved]
  - Injection site haemorrhage [Unknown]

NARRATIVE: CASE EVENT DATE: 20230102
